FAERS Safety Report 9962080 (Version 2)
Quarter: 2014Q1

REPORT INFORMATION
  Report Type: Report from Study
  Country: US (occurrence: US)
  Receive Date: 20140305
  Receipt Date: 20140305
  Transmission Date: 20141002
  Serious: No
  Sender: FDA-Public Use
  Company Number: US-ABBVIE-13P-163-1115783-00

PATIENT
  Age: 49 Year
  Sex: Female

DRUGS (1)
  1. HUMIRA [Suspect]
     Indication: PSORIATIC ARTHROPATHY
     Route: 058
     Dates: start: 20130617, end: 20130701

REACTIONS (6)
  - Sunburn [Not Recovered/Not Resolved]
  - Rash macular [Recovering/Resolving]
  - Injection site urticaria [Recovering/Resolving]
  - Rash pruritic [Recovering/Resolving]
  - Rash maculo-papular [Recovering/Resolving]
  - Photosensitivity reaction [Not Recovered/Not Resolved]
